FAERS Safety Report 4648386-7 (Version None)
Quarter: 2005Q2

REPORT INFORMATION
  Report Type: 
  Country: None (occurrence: None)
  Receive Date: 20050427
  Receipt Date: 20040616
  Transmission Date: 20051028
  Serious: Yes (Death, Hospitalization)
  Sender: FDA-Public Use
  Company Number: 8233

PATIENT
  Age: 72 Year
  Sex: Female

DRUGS (3)
  1. METHOTREXATE [Suspect]
     Indication: RHEUMATOID ARTHRITIS
     Dosage: 4 MG WEEKLY
     Dates: start: 20000701, end: 20020501
  2. BUCILLAMINE [Concomitant]
  3. PREDNISOLONE [Concomitant]

REACTIONS (7)
  - ANTI-HBE ANTIBODY POSITIVE [None]
  - ARTHRALGIA [None]
  - HEPATIC NECROSIS [None]
  - HEPATITIS FULMINANT [None]
  - HEPATOMEGALY [None]
  - JOINT SWELLING [None]
  - PNEUMONIA FUNGAL [None]
